FAERS Safety Report 24379215 (Version 2)
Quarter: 2024Q4

REPORT INFORMATION
  Report Type: Spontaneous
  Country: US (occurrence: US)
  Receive Date: 20240930
  Receipt Date: 20241028
  Transmission Date: 20250114
  Serious: No
  Sender: EISAI
  Company Number: US-Eisai-EC-2024-174258

PATIENT
  Age: 79 Year
  Sex: Female
  Weight: 53.8 kg

DRUGS (5)
  1. LEQEMBI [Suspect]
     Active Substance: LECANEMAB-IRMB
     Indication: Dementia Alzheimer^s type
     Dosage: DOSE UNKNOWN
     Route: 042
     Dates: start: 20240910
  2. MEMANTINE [Concomitant]
     Active Substance: MEMANTINE
  3. SERTRALINE [Concomitant]
     Active Substance: SERTRALINE HYDROCHLORIDE
  4. DONEPEZIL [Concomitant]
     Active Substance: DONEPEZIL
  5. BUPROPION [Concomitant]
     Active Substance: BUPROPION

REACTIONS (2)
  - Blood pressure increased [Recovered/Resolved]
  - Dizziness [Recovering/Resolving]

NARRATIVE: CASE EVENT DATE: 20240910
